FAERS Safety Report 9796716 (Version 2)
Quarter: 2014Q1

REPORT INFORMATION
  Report Type: Spontaneous
  Country: US (occurrence: US)
  Receive Date: 20140103
  Receipt Date: 20140210
  Transmission Date: 20141002
  Serious: No
  Sender: FDA-Public Use
  Company Number: US-TEVA-453435USA

PATIENT
  Sex: Male

DRUGS (2)
  1. AZILECT [Suspect]
     Route: 048
  2. LEVODOPA [Concomitant]

REACTIONS (1)
  - Impulse-control disorder [Recovered/Resolved]
